FAERS Safety Report 17377592 (Version 1)
Quarter: 2020Q1

REPORT INFORMATION
  Report Type: Report from Study
  Country: IT (occurrence: IT)
  Receive Date: 20200206
  Receipt Date: 20200206
  Transmission Date: 20200409
  Serious: Yes (Hospitalization)
  Sender: FDA-Public Use
  Company Number: IT-MYLANLABS-2020M1013192

PATIENT
  Age: 49 Year
  Sex: Male

DRUGS (1)
  1. BRUFEN [Suspect]
     Active Substance: IBUPROFEN
     Indication: PAIN IN EXTREMITY
     Dosage: 1 DOSAGE FORM, QD
     Route: 048
     Dates: start: 20191107, end: 20191117

REACTIONS (3)
  - Iron deficiency anaemia [Recovering/Resolving]
  - Gastric ulcer [Recovering/Resolving]
  - Erosive oesophagitis [Recovering/Resolving]

NARRATIVE: CASE EVENT DATE: 20191117
